FAERS Safety Report 9495554 (Version 1)
Quarter: 2013Q3

REPORT INFORMATION
  Report Type: Spontaneous
  Country: DE (occurrence: DE)
  Receive Date: 20130903
  Receipt Date: 20130903
  Transmission Date: 20140515
  Serious: Yes (Other)
  Sender: FDA-Public Use
  Company Number: DE-B.I. PHARMACEUTICALS,INC./RIDGEFIELD-2013-BI-26849DE

PATIENT
  Age: 77 Year
  Sex: Male

DRUGS (4)
  1. PRADAXA [Suspect]
     Indication: ATRIAL FIBRILLATION
  2. CHEMOTHERAPY [Concomitant]
  3. RADIATION THERAPY [Concomitant]
  4. CLEXANE [Concomitant]
     Dosage: FORMULATION:INJECTION

REACTIONS (2)
  - Rectal cancer [Unknown]
  - Surgery [Unknown]
